FAERS Safety Report 4757299-1 (Version None)
Quarter: 2005Q3

REPORT INFORMATION
  Report Type: 
  Country: None (occurrence: None)
  Receive Date: 20050831
  Receipt Date: 20050824
  Transmission Date: 20060218
  Serious: Yes (Other)
  Sender: FDA-Public Use
  Company Number: US-BRISTOL-MYERS SQUIBB COMPANY-13090402

PATIENT
  Age: 36 Year
  Sex: Female
  Weight: 69 kg

DRUGS (8)
  1. BLENOXANE [Suspect]
     Indication: HODGKIN'S DISEASE
     Dates: start: 20041228
  2. DOXORUBICIN HCL [Suspect]
     Indication: HODGKIN'S DISEASE
     Dates: start: 20041228
  3. VINBLASTINE SULFATE [Suspect]
     Indication: HODGKIN'S DISEASE
     Dates: start: 20041228
  4. DACARBAZINE [Suspect]
     Indication: HODGKIN'S DISEASE
     Dates: start: 20041228
  5. NEULASTA [Suspect]
     Indication: CHEMOTHERAPY
     Dates: start: 20050125, end: 20050502
  6. LORAZEPAM [Concomitant]
  7. PREDNISONE [Concomitant]
  8. DEXAMETHASONE [Concomitant]

REACTIONS (3)
  - DYSPNOEA [None]
  - PULMONARY FUNCTION TEST DECREASED [None]
  - PULMONARY TOXICITY [None]
